FAERS Safety Report 9253258 (Version 1)
Quarter: 2013Q2

REPORT INFORMATION
  Report Type: Spontaneous
  Country: US (occurrence: US)
  Receive Date: 20130424
  Receipt Date: 20130424
  Transmission Date: 20140414
  Serious: No
  Sender: FDA-Public Use
  Company Number: US-B.I. PHARMACEUTICALS,INC./RIDGEFIELD-2013-BI-10669BP

PATIENT
  Age: 88 Year
  Sex: Female

DRUGS (4)
  1. SPIRIVA [Suspect]
     Dosage: 18 MCG
     Route: 055
  2. TRENTAL [Concomitant]
     Route: 048
  3. PROCARDIA [Concomitant]
     Route: 048
  4. ATENOLOL [Concomitant]
     Route: 048

REACTIONS (3)
  - Dyspnoea [Recovered/Resolved]
  - Product quality issue [Recovered/Resolved]
  - Product quality issue [Recovered/Resolved]
